FAERS Safety Report 24970347 (Version 2)
Quarter: 2025Q1

REPORT INFORMATION
  Report Type: Spontaneous
  Country: BE (occurrence: BE)
  Receive Date: 20250214
  Receipt Date: 20250318
  Transmission Date: 20250409
  Serious: Yes (Life-Threatening, Hospitalization)
  Sender: MYLAN
  Company Number: BE-MYLANLABS-2025M1012791

PATIENT
  Age: 31 Year
  Sex: Female

DRUGS (6)
  1. EPINEPHRINE [Suspect]
     Active Substance: EPINEPHRINE
     Indication: Product used for unknown indication
  2. DEXMEDETOMIDINE [Suspect]
     Active Substance: DEXMEDETOMIDINE
     Indication: General anaesthesia
  3. PROPOFOL [Concomitant]
     Active Substance: PROPOFOL
     Indication: General anaesthesia
  4. ROCURONIUM [Concomitant]
     Active Substance: ROCURONIUM BROMIDE
     Indication: Relaxation therapy
  5. TRANEXAMIC ACID [Concomitant]
     Active Substance: TRANEXAMIC ACID
     Indication: Prophylaxis
  6. CEFAZOLIN SODIUM [Concomitant]
     Active Substance: CEFAZOLIN SODIUM
     Indication: Prophylaxis

REACTIONS (8)
  - Posterior reversible encephalopathy syndrome [Recovering/Resolving]
  - Ventricular fibrillation [Recovered/Resolved]
  - Tachycardia [Unknown]
  - Hypertension [Unknown]
  - Accidental overdose [Unknown]
  - Accidental exposure to product [Unknown]
  - Cyanosis [Unknown]
  - Cardiomyopathy [Unknown]
